FAERS Safety Report 23627756 (Version 3)
Quarter: 2024Q2

REPORT INFORMATION
  Report Type: Spontaneous
  Country: US (occurrence: US)
  Receive Date: 20240313
  Receipt Date: 20240403
  Transmission Date: 20240716
  Serious: No
  Sender: FDA-Public Use
  Company Number: US-BIOGEN-2024BI01254636

PATIENT
  Age: 32 Year
  Sex: Female

DRUGS (1)
  1. TYSABRI [Suspect]
     Active Substance: NATALIZUMAB
     Indication: Multiple sclerosis
     Route: 050
     Dates: start: 20230622

REACTIONS (8)
  - Rash papular [Unknown]
  - Musculoskeletal stiffness [Unknown]
  - Musculoskeletal disorder [Unknown]
  - Rash macular [Recovered/Resolved]
  - Peripheral swelling [Unknown]
  - Headache [Unknown]
  - Hypersensitivity [Unknown]
  - Thermal burn [Unknown]

NARRATIVE: CASE EVENT DATE: 20230622
